FAERS Safety Report 4338076-2 (Version None)
Quarter: 2004Q1

REPORT INFORMATION
  Report Type: 
  Country: None (occurrence: None)
  Receive Date: 20040329
  Receipt Date: 20040128
  Transmission Date: 20041129
  Serious: No
  Sender: FDA-Public Use
  Company Number: USA040157883

PATIENT
  Age: 52 Year
  Sex: Male

DRUGS (1)
  1. STRATTERA [Suspect]
     Indication: ATTENTION DEFICIT/HYPERACTIVITY DISORDER
     Dosage: 40 MG/DAY
     Dates: start: 20040126

REACTIONS (6)
  - DIZZINESS [None]
  - DYSURIA [None]
  - NAUSEA [None]
  - PROSTATIC DISORDER [None]
  - RHINORRHOEA [None]
  - URINARY TRACT DISORDER [None]
